FAERS Safety Report 5670607-2 (Version None)
Quarter: 2008Q1

REPORT INFORMATION
  Report Type: 
  Country: None (occurrence: None)
  Receive Date: 20080313
  Receipt Date: 20080304
  Transmission Date: 20080703
  Serious: Yes (Death, Hospitalization)
  Sender: FDA-Public Use
  Company Number: JS-JNJFOC-20080301292

PATIENT
  Age: 68 Year
  Sex: Male
  Weight: 73 kg

DRUGS (1)
  1. DECITABINE (DECITABINE) LYOPHILIZED POWDER [Suspect]
     Indication: MYELOFIBROSIS
     Dosage: 0.3 MG/KG, 1 IN 1 DAY, SUBCUTANEOUS
     Route: 058
     Dates: start: 20080121, end: 20080201

REACTIONS (10)
  - CARDIAC FAILURE CONGESTIVE [None]
  - CATHETER SEPSIS [None]
  - FEBRILE NEUTROPENIA [None]
  - LUNG CONSOLIDATION [None]
  - NEPHROLITHIASIS [None]
  - OPPORTUNISTIC INFECTION [None]
  - PNEUMONIA FUNGAL [None]
  - PULMONARY OEDEMA [None]
  - RENAL FAILURE [None]
  - STAPHYLOCOCCAL INFECTION [None]
